FAERS Safety Report 24900838 (Version 1)
Quarter: 2025Q1

REPORT INFORMATION
  Report Type: Spontaneous
  Country: SG (occurrence: SG)
  Receive Date: 20250129
  Receipt Date: 20250129
  Transmission Date: 20250409
  Serious: Yes (Disabling)
  Sender: NEUROCRINE BIOSCIENCES
  Company Number: SG-NEUROCRINE BIOSCIENCES INC.-2025NBI00908

PATIENT
  Age: 26 Year
  Sex: Male

DRUGS (1)
  1. VALBENAZINE TOSYLATE [Suspect]
     Active Substance: VALBENAZINE TOSYLATE
     Indication: Tardive dyskinesia
     Route: 048
     Dates: start: 20241213, end: 20250115

REACTIONS (1)
  - Major depression [Not Recovered/Not Resolved]

NARRATIVE: CASE EVENT DATE: 20250101
